FAERS Safety Report 12436378 (Version 2)
Quarter: 2016Q4

REPORT INFORMATION
  Report Type: Spontaneous
  Country: US (occurrence: US)
  Receive Date: 20160606
  Receipt Date: 20161130
  Transmission Date: 20170207
  Serious: No
  Sender: FDA-Public Use
  Company Number: US-CELGENEUS-USA-2016055197

PATIENT
  Age: 73 Year
  Sex: Male

DRUGS (2)
  1. OTEZLA [Suspect]
     Active Substance: APREMILAST
     Indication: PSORIASIS
     Dosage: QD
     Route: 048
     Dates: start: 201606
  2. OTEZLA [Suspect]
     Active Substance: APREMILAST
     Dosage: BID
     Route: 048
     Dates: start: 2016, end: 201606

REACTIONS (1)
  - Diarrhoea [Recovered/Resolved]

NARRATIVE: CASE EVENT DATE: 201606
